FAERS Safety Report 15594140 (Version 6)
Quarter: 2019Q4

REPORT INFORMATION
  Report Type: Report from Study
  Country: DE (occurrence: DE)
  Receive Date: 20181107
  Receipt Date: 20191223
  Transmission Date: 20200122
  Serious: Yes (Hospitalization, Other)
  Sender: FDA-Public Use
  Company Number: PHHY2016DE126881

PATIENT
  Sex: Female
  Weight: 68 kg

DRUGS (4)
  1. DEXAGENT OPHTAL [Concomitant]
     Active Substance: DEXAMETHASONE\GENTAMICIN SULFATE
     Indication: EYE INFLAMMATION
     Dosage: UNK
     Route: 065
     Dates: start: 20171101, end: 20171116
  2. GILENYA [Suspect]
     Active Substance: FINGOLIMOD HYDROCHLORIDE
     Indication: MULTIPLE SCLEROSIS
     Dosage: 0.5 MG, QD
     Route: 048
     Dates: start: 20160428, end: 20180711
  3. GILENYA [Suspect]
     Active Substance: FINGOLIMOD HYDROCHLORIDE
     Dosage: 0.5 MG, QD
     Route: 048
     Dates: start: 20180816
  4. PREDNISOLUT [Concomitant]
     Active Substance: PREDNISOLONE
     Indication: PRODUCT USED FOR UNKNOWN INDICATION
     Dosage: 25 MG, UNK
     Route: 055
     Dates: start: 20160616, end: 20160710

REACTIONS (12)
  - Abdominal pain [Recovered/Resolved]
  - Heart rate increased [Unknown]
  - Aspartate aminotransferase increased [Recovered/Resolved]
  - Blood pressure increased [Recovered/Resolved]
  - Alanine aminotransferase increased [Recovered/Resolved]
  - Hepatitis E [Not Recovered/Not Resolved]
  - Blood bilirubin increased [Recovered/Resolved]
  - Hypertension [Recovering/Resolving]
  - Abdominal discomfort [Recovered/Resolved]
  - Blood pressure increased [Recovered/Resolved]
  - Skin abrasion [Unknown]
  - Gamma-glutamyltransferase increased [Recovered/Resolved]

NARRATIVE: CASE EVENT DATE: 20160428
